FAERS Safety Report 15720093 (Version 9)
Quarter: 2021Q1

REPORT INFORMATION
  Report Type: Report from Study
  Country: US (occurrence: US)
  Receive Date: 20181213
  Receipt Date: 20210313
  Transmission Date: 20210419
  Serious: Yes (Death, Life-Threatening, Other)
  Sender: FDA-Public Use
  Company Number: PHEH2018US051085

PATIENT
  Age: 2 Year
  Sex: Female

DRUGS (4)
  1. KYMRIAH [Suspect]
     Active Substance: TISAGENLECLEUCEL
     Indication: B-CELL TYPE ACUTE LEUKAEMIA
     Dosage: ONCE/SINGLE
     Route: 041
     Dates: start: 20181120
  2. CYCLOPHOSPHAMIDE. [Concomitant]
     Active Substance: CYCLOPHOSPHAMIDE
     Indication: CHEMOTHERAPY
     Route: 065
  3. FLUDARABINE [Concomitant]
     Active Substance: FLUDARABINE PHOSPHATE
     Indication: CHEMOTHERAPY
     Route: 065
  4. KYMRIAH [Suspect]
     Active Substance: TISAGENLECLEUCEL
     Indication: ACUTE LYMPHOCYTIC LEUKAEMIA

REACTIONS (19)
  - Pulmonary veno-occlusive disease [Fatal]
  - Malignant neoplasm progression [Unknown]
  - Cytopenia [Unknown]
  - Haematocrit decreased [Unknown]
  - Hypoxia [Unknown]
  - Pyrexia [Unknown]
  - B-cell type acute leukaemia [Unknown]
  - Tumour lysis syndrome [Unknown]
  - Haemoglobin decreased [Unknown]
  - Acute myeloid leukaemia [Unknown]
  - Cytokine release syndrome [Unknown]
  - Thrombocytopenia [Unknown]
  - Neutropenia [Unknown]
  - Treatment failure [Unknown]
  - White blood cell count decreased [Unknown]
  - Second primary malignancy [Unknown]
  - Cardiopulmonary failure [Unknown]
  - Staphylococcal infection [Unknown]
  - Organ failure [Unknown]
